FAERS Safety Report 9329228 (Version 1)
Quarter: 2013Q2

REPORT INFORMATION
  Report Type: Spontaneous
  Country: US (occurrence: None)
  Receive Date: 20130531
  Receipt Date: 20130531
  Transmission Date: 20140414
  Serious: Yes (Hospitalization, Other)
  Sender: FDA-Public Use
  Company Number: 2013P1006261

PATIENT
  Age: 62 Year
  Sex: Male

DRUGS (2)
  1. BUPROPION [Suspect]
     Indication: MAJOR DEPRESSION
  2. CITALOPRAM [Suspect]

REACTIONS (8)
  - Tremor [None]
  - Hyperhidrosis [None]
  - Anxiety [None]
  - Tachycardia [None]
  - Blood pressure increased [None]
  - Clonus [None]
  - Serotonin syndrome [None]
  - Neuromyopathy [None]
